FAERS Safety Report 18654311 (Version 1)
Quarter: 2020Q4

REPORT INFORMATION
  Report Type: Spontaneous
  Country: US (occurrence: US)
  Receive Date: 20201223
  Receipt Date: 20201223
  Transmission Date: 20210114
  Serious: No
  Sender: FDA-Public Use
  Company Number: US-JNJFOC-20201220473

PATIENT

DRUGS (1)
  1. WOMENS ROGAINE UNSCENTED [Suspect]
     Active Substance: MINOXIDIL
     Indication: ALOPECIA
     Dosage: PRODUCT LAST USED DATE : DEC/2020
     Route: 065
     Dates: start: 202007

REACTIONS (4)
  - Therapeutic response unexpected [Unknown]
  - Overdose [Unknown]
  - Hair growth abnormal [Recovered/Resolved]
  - Product use in unapproved indication [Unknown]
